FAERS Safety Report 6134364-8 (Version None)
Quarter: 2009Q1

REPORT INFORMATION
  Report Type: 
  Country: None (occurrence: None)
  Receive Date: 20090327
  Receipt Date: 20090316
  Transmission Date: 20090719
  Serious: Yes (Other)
  Sender: FDA-Public Use
  Company Number: PT-RANBAXY-2009RR-22880

PATIENT
  Age: 74 Year
  Sex: Male

DRUGS (3)
  1. SIMVASTATIN [Suspect]
     Dosage: UNK
     Dates: start: 20050101
  2. ROSUVASTATIN CALCIUM [Suspect]
     Dosage: UNK
     Dates: start: 20060401
  3. FENOFIBRATE [Concomitant]

REACTIONS (2)
  - MUSCLE NECROSIS [None]
  - MYOPATHY [None]
